FAERS Safety Report 9190645 (Version 1)
Quarter: 2013Q1

REPORT INFORMATION
  Report Type: Spontaneous
  Country: US (occurrence: None)
  Receive Date: 20130322
  Receipt Date: 20130322
  Transmission Date: 20140127
  Serious: Yes (Other)
  Sender: FDA-Public Use
  Company Number: SYM-2013-01838

PATIENT
  Sex: 0

DRUGS (4)
  1. FLUOROURACIL (FLUOROURACIL) [Suspect]
  2. OXALIPLATIN (OXALIPLATIN) (OXALIPLATIN) [Suspect]
  3. IRINOTECAN (IRINOTECAN) [Suspect]
  4. LEUCOVORIN (FOLINIC ACID) (FOLINIC ACID) [Suspect]

REACTIONS (1)
  - Febrile neutropenia [None]
